FAERS Safety Report 13782576 (Version 4)
Quarter: 2017Q4

REPORT INFORMATION
  Report Type: Spontaneous
  Country: KR (occurrence: KR)
  Receive Date: 20170724
  Receipt Date: 20171027
  Transmission Date: 20180320
  Serious: Yes (Hospitalization)
  Sender: FDA-Public Use
  Company Number: KP-009507513-1707KOR005980

PATIENT
  Age: 48 Year
  Sex: Female
  Weight: 55.1 kg

DRUGS (10)
  1. SEPTRIN [Concomitant]
     Active Substance: SULFAMETHOXAZOLE\TRIMETHOPRIM
     Indication: OPPORTUNISTIC INFECTION PROPHYLAXIS
     Dosage: 1 DF, QD ONCE DAILY
     Route: 048
     Dates: start: 20170605
  2. MYCOBUTIN [Concomitant]
     Active Substance: RIFABUTIN
     Indication: PULMONARY TUBERCULOSIS
     Dosage: 450 MG, QD ONCE DAILY
     Route: 048
     Dates: start: 20170510
  3. NOXAFIL [Suspect]
     Active Substance: POSACONAZOLE
     Dosage: 300 MG, QD
     Route: 048
     Dates: start: 20170610
  4. URSA TABLETS [Concomitant]
     Indication: PROPHYLAXIS
     Dosage: 100 MG, TID
     Route: 048
     Dates: start: 20170509, end: 20170628
  5. MYAMBUTOL [Concomitant]
     Active Substance: ETHAMBUTOL HYDROCHLORIDE
     Indication: PULMONARY TUBERCULOSIS
     Dosage: 800 MG, QD ONCE DAILY
     Route: 048
     Dates: start: 20170124
  6. SOLONDO [Concomitant]
     Active Substance: PREDNISOLONE
     Indication: PROPHYLAXIS
     Dosage: 5 MG, QD ONCE DAILY
     Route: 048
     Dates: start: 20170614
  7. CIPOL N [Concomitant]
     Indication: PROPHYLAXIS
     Dosage: 100 MG, QD ONCE DAILY
     Route: 048
     Dates: start: 20170615
  8. CRAVIT [Concomitant]
     Active Substance: LEVOFLOXACIN
     Indication: PULMONARY TUBERCULOSIS
     Dosage: 500 MG, QD ONCE DAILY
     Route: 048
     Dates: start: 20170216
  9. NOXAFIL [Suspect]
     Active Substance: POSACONAZOLE
     Indication: INFECTION PROPHYLAXIS
     Dosage: 300 MG, BID
     Route: 048
     Dates: start: 20170609, end: 20170609
  10. SMOFKABIVEN [Concomitant]
     Active Substance: AMINO ACIDS\DEXTROSE\ELECTROLYTES NOS\SOYBEAN OIL
     Indication: PROPHYLAXIS
     Dosage: 986 ML, QD(ONCE DAILY)
     Route: 042
     Dates: start: 20170516, end: 20170620

REACTIONS (3)
  - Diarrhoea [Recovered/Resolved]
  - Chronic gastritis [Unknown]
  - Nasopharyngitis [Unknown]

NARRATIVE: CASE EVENT DATE: 2017
